FAERS Safety Report 19964322 (Version 2)
Quarter: 2021Q4

REPORT INFORMATION
  Report Type: Spontaneous
  Country: GB (occurrence: GB)
  Receive Date: 20211018
  Receipt Date: 20211025
  Transmission Date: 20220303
  Serious: Yes (Other)
  Sender: FDA-Public Use
  Company Number: None

PATIENT
  Age: 65 Year
  Sex: Male

DRUGS (10)
  1. SOTALOL HYDROCHLORIDE [Suspect]
     Active Substance: SOTALOL HYDROCHLORIDE
     Indication: Ventricular tachyarrhythmia
     Dosage: 80 MILLIGRAM DAILY;
     Route: 048
     Dates: start: 20211001, end: 20211003
  2. BUMETANIDE [Concomitant]
     Active Substance: BUMETANIDE
  3. DAPAGLIFLOZIN [Concomitant]
     Active Substance: DAPAGLIFLOZIN
  4. DIGOXIN [Concomitant]
     Active Substance: DIGOXIN
  5. EPLERENONE [Concomitant]
     Active Substance: EPLERENONE
  6. FAMOTIDINE [Concomitant]
     Active Substance: FAMOTIDINE
  7. ISOSORBIDE MONONITRATE [Concomitant]
     Active Substance: ISOSORBIDE MONONITRATE
  8. LANTUS [Concomitant]
     Active Substance: INSULIN GLARGINE
  9. TAMSULOSIN [Concomitant]
     Active Substance: TAMSULOSIN
  10. NOVORAPID [Concomitant]
     Active Substance: INSULIN ASPART

REACTIONS (1)
  - Pemphigoid [Not Recovered/Not Resolved]

NARRATIVE: CASE EVENT DATE: 20211001
